FAERS Safety Report 8996267 (Version 6)
Quarter: 2013Q2

REPORT INFORMATION
  Report Type: Spontaneous
  Country: US (occurrence: US)
  Receive Date: 20130103
  Receipt Date: 20130503
  Transmission Date: 20140414
  Serious: Yes (Hospitalization, Disabling, Other)
  Sender: FDA-Public Use
  Company Number: US-009507513-1212USA010547

PATIENT
  Sex: Female

DRUGS (7)
  1. FOSAMAX [Suspect]
     Indication: OSTEOPENIA
     Dosage: 70 MG, QW
     Route: 048
     Dates: start: 2005, end: 20110411
  2. FOSAMAX [Suspect]
     Indication: OSTEOPOROSIS
     Dosage: 70 MG QW
     Route: 048
     Dates: start: 20000809, end: 201108
  3. EVISTA [Concomitant]
     Dosage: UNK
     Dates: end: 2006
  4. CENTRUM SILVER [Concomitant]
     Dosage: UNK, QD
     Route: 048
     Dates: start: 2002
  5. OMEGA-3 MARINE TRIGLYCERIDES [Concomitant]
     Dosage: 1200 MG, QD
     Route: 048
  6. [THERAPY UNSPECIFIED] [Concomitant]
     Indication: HYPERTENSION
     Dosage: UNK
     Dates: start: 1990
  7. [THERAPY UNSPECIFIED] [Concomitant]
     Indication: HYPERCHOLESTEROLAEMIA
     Dosage: UNK
     Dates: start: 1990

REACTIONS (23)
  - Femur fracture [Recovered/Resolved]
  - Femur fracture [Recovering/Resolving]
  - Intramedullary rod insertion [Unknown]
  - Osteoporosis [Unknown]
  - Low turnover osteopathy [Unknown]
  - Bone disorder [Unknown]
  - Fall [Unknown]
  - Intramedullary rod insertion [Unknown]
  - Pathological fracture [Unknown]
  - Femur fracture [Unknown]
  - Atypical fracture [Unknown]
  - Haemorrhoids [Unknown]
  - Diverticulum [Unknown]
  - Barrett^s oesophagus [Unknown]
  - Arthroscopy [Unknown]
  - Atrophic vulvovaginitis [Unknown]
  - Large intestine polyp [Unknown]
  - Ecchymosis [Unknown]
  - Fall [Unknown]
  - Hypokalaemia [Unknown]
  - Myringitis [Unknown]
  - Gastritis [Unknown]
  - Oesophagitis [Unknown]
